FAERS Safety Report 25647612 (Version 4)
Quarter: 2025Q3

REPORT INFORMATION
  Report Type: Report from Study
  Country: US (occurrence: US)
  Receive Date: 20250806
  Receipt Date: 20250925
  Transmission Date: 20251021
  Serious: No
  Sender: SUNOVION
  Company Number: US-SUMITOMO PHARMA SWITZERLAND GMBH-2025SPA008736

PATIENT
  Age: 54 Year
  Sex: Male

DRUGS (14)
  1. ORGOVYX [Suspect]
     Active Substance: RELUGOLIX
     Indication: Prostate cancer
     Route: 048
     Dates: start: 20250702, end: 20250702
  2. ORGOVYX [Suspect]
     Active Substance: RELUGOLIX
     Route: 048
  3. ERLEADA [Suspect]
     Active Substance: APALUTAMIDE
     Indication: Product used for unknown indication
  4. ATORVASTATIN CALCIUM [Concomitant]
     Active Substance: ATORVASTATIN CALCIUM
  5. AUGMENTIN [Concomitant]
     Active Substance: AMOXICILLIN\CLAVULANATE POTASSIUM
  6. CARVEDILOL [Concomitant]
     Active Substance: CARVEDILOL
  7. ENTRESTO [Concomitant]
     Active Substance: SACUBITRIL\VALSARTAN
  8. FINASTERIDE [Concomitant]
     Active Substance: FINASTERIDE
  9. GLIPIZIDE [Concomitant]
     Active Substance: GLIPIZIDE
  10. LACTULOSE [Concomitant]
     Active Substance: LACTULOSE
  11. METFORMIN HYDROCHLORIDE [Concomitant]
     Active Substance: METFORMIN HYDROCHLORIDE
  12. OXYBUTYNIN CHLORIDE [Concomitant]
     Active Substance: OXYBUTYNIN CHLORIDE
  13. TAMSULOSIN HYDROCHLORIDE [Concomitant]
     Active Substance: TAMSULOSIN HYDROCHLORIDE
  14. NITROFURANTOIN [Concomitant]
     Active Substance: NITROFURANTOIN

REACTIONS (12)
  - Heart rate increased [Unknown]
  - Quality of life decreased [Unknown]
  - Device related infection [Not Recovered/Not Resolved]
  - Bacterial infection [Not Recovered/Not Resolved]
  - Urinary tract infection [Unknown]
  - Dysuria [Unknown]
  - Headache [Unknown]
  - Myalgia [Unknown]
  - Pain in extremity [Unknown]
  - Hot flush [Unknown]
  - Arthralgia [Unknown]
  - Product dose omission issue [Recovered/Resolved]
